FAERS Safety Report 4433523-X (Version None)
Quarter: 2004Q3

REPORT INFORMATION
  Report Type: 
  Country: None (occurrence: None)
  Receive Date: 20040826
  Receipt Date: 20040820
  Transmission Date: 20050211
  Serious: Yes (Life-Threatening)
  Sender: FDA-Public Use
  Company Number: 200413144FR

PATIENT
  Age: 75 Year
  Sex: Female

DRUGS (5)
  1. LOVENOX [Suspect]
     Route: 058
     Dates: start: 20040611, end: 20040714
  2. MOTILIUM [Suspect]
     Dosage: DOSE UNIT: UNITS
     Route: 048
     Dates: start: 20040701, end: 20040714
  3. ATHYMIL [Suspect]
     Dosage: DOSE UNIT: UNITS
     Route: 048
     Dates: start: 20040603, end: 20040714
  4. ASPIRIN [Suspect]
     Route: 048
     Dates: start: 20040705, end: 20040714
  5. EBIXA [Suspect]
     Route: 048
     Dates: start: 20040701, end: 20040714

REACTIONS (1)
  - AGRANULOCYTOSIS [None]
